FAERS Safety Report 9162590 (Version 3)
Quarter: 2013Q1

REPORT INFORMATION
  Report Type: Spontaneous
  Country: JP (occurrence: JP)
  Receive Date: 20130314
  Receipt Date: 20130328
  Transmission Date: 20140127
  Serious: Yes (Other)
  Sender: FDA-Public Use
  Company Number: JP-PFIZER INC-2013082226

PATIENT
  Age: 37 Year
  Sex: Female

DRUGS (3)
  1. VIBRAMYCIN [Suspect]
     Indication: ECZEMA
     Dosage: UNK
     Route: 048
  2. LOXOPROFEN [Suspect]
     Indication: ANALGESIC THERAPY
     Route: 048
  3. LOXONIN [Suspect]
     Indication: ANALGESIC THERAPY
     Route: 048

REACTIONS (1)
  - Gastric ulcer [Unknown]
